FAERS Safety Report 7275295-X (Version None)
Quarter: 2011Q1

REPORT INFORMATION
  Report Type: 
  Country: None (occurrence: None)
  Receive Date: 20110204
  Receipt Date: 20110128
  Transmission Date: 20110831
  Serious: Yes (Other)
  Sender: FDA-Public Use
  Company Number: IE-ROCHE-756092

PATIENT
  Age: 67 Year
  Sex: Female

DRUGS (5)
  1. LIPITOR [Concomitant]
     Dosage: FILM COATED TABLETS.
     Dates: start: 20080802
  2. BONIVA [Suspect]
     Indication: OSTEOPENIA
     Dosage: DISCONTINUED. FIRST DOSE.
     Route: 048
  3. IDEOS [Concomitant]
     Dosage: FILM COATED TABLETS.
     Dates: start: 20080407
  4. ARIMIDEX [Concomitant]
     Dosage: FILM COATED TABLETS.
     Dates: start: 20080802
  5. NU-SEALS [Concomitant]
     Dosage: FILM COATED TABLETS.
     Dates: start: 20080802

REACTIONS (8)
  - PAIN [None]
  - MUSCLE SPASMS [None]
  - NAUSEA [None]
  - HAEMORRHAGE URINARY TRACT [None]
  - ABDOMINAL PAIN UPPER [None]
  - DIZZINESS [None]
  - FATIGUE [None]
  - DYSPEPSIA [None]
